FAERS Safety Report 17243310 (Version 1)
Quarter: 2020Q1

REPORT INFORMATION
  Report Type: Spontaneous
  Country: NL (occurrence: DE)
  Receive Date: 20200107
  Receipt Date: 20200107
  Transmission Date: 20200409
  Serious: Yes (Hospitalization, Other)
  Sender: FDA-Public Use
  Company Number: DE-BAYER-2020-000619

PATIENT
  Age: 55 Year
  Sex: Female
  Weight: 60 kg

DRUGS (4)
  1. CIPROFLOXACIN. [Suspect]
     Active Substance: CIPROFLOXACIN
     Indication: NOSOCOMIAL INFECTION
     Dosage: 2X500
     Route: 048
     Dates: start: 20190829, end: 20190902
  2. CEFAZOLIN [Suspect]
     Active Substance: CEFAZOLIN
     Indication: INTRAOPERATIVE CARE
     Dosage: ONCE AS SINGLE SHOT INTRAOPERATIVE
     Route: 042
     Dates: start: 20190718
  3. CEFPODOXIME [Suspect]
     Active Substance: CEFPODOXIME
     Indication: URINARY TRACT INFECTION
     Dosage: 2X200
     Route: 048
     Dates: start: 20190825, end: 20190829
  4. CANDECOR [Concomitant]
     Active Substance: CANDESARTAN CILEXETIL
     Indication: PRE-ECLAMPSIA
     Dosage: 16 MG
     Dates: start: 1995

REACTIONS (48)
  - Dyspnoea [Not Recovered/Not Resolved]
  - Photosensitivity reaction [Not Recovered/Not Resolved]
  - Sense of oppression [Not Recovered/Not Resolved]
  - Tinnitus [Not Recovered/Not Resolved]
  - Dry mouth [Not Recovered/Not Resolved]
  - Influenza like illness [Unknown]
  - Dry eye [Not Recovered/Not Resolved]
  - Vision blurred [Recovered/Resolved]
  - Hyperacusis [Not Recovered/Not Resolved]
  - Adverse drug reaction [Unknown]
  - Arrhythmia [Not Recovered/Not Resolved]
  - Osteochondrosis [Not Recovered/Not Resolved]
  - Fatigue [Not Recovered/Not Resolved]
  - Pulse abnormal [Not Recovered/Not Resolved]
  - Adverse reaction [Not Recovered/Not Resolved]
  - Chest discomfort [Unknown]
  - Blood pressure increased [Unknown]
  - Fatigue [Not Recovered/Not Resolved]
  - Impaired work ability [Not Recovered/Not Resolved]
  - Joint noise [Not Recovered/Not Resolved]
  - Dyspnoea [Not Recovered/Not Resolved]
  - Arthralgia [Not Recovered/Not Resolved]
  - Somnolence [Unknown]
  - Blood pressure abnormal [Not Recovered/Not Resolved]
  - Visual impairment [Not Recovered/Not Resolved]
  - Muscular weakness [Unknown]
  - Tendon pain [Not Recovered/Not Resolved]
  - Abdominal discomfort [Unknown]
  - Rash pruritic [Unknown]
  - Muscle twitching [Not Recovered/Not Resolved]
  - Dizziness [Not Recovered/Not Resolved]
  - Arthralgia [Not Recovered/Not Resolved]
  - Middle insomnia [Not Recovered/Not Resolved]
  - Connective tissue disorder [Not Recovered/Not Resolved]
  - Abdominal pain [Unknown]
  - Muscular weakness [Not Recovered/Not Resolved]
  - Pyrexia [Unknown]
  - Nervous system disorder [Unknown]
  - Paraesthesia [Unknown]
  - Feeling hot [Not Recovered/Not Resolved]
  - Somnolence [Not Recovered/Not Resolved]
  - Rash [Unknown]
  - Gait disturbance [Not Recovered/Not Resolved]
  - Myalgia [Not Recovered/Not Resolved]
  - Disturbance in attention [Not Recovered/Not Resolved]
  - Burning sensation [Unknown]
  - Gait disturbance [Not Recovered/Not Resolved]
  - Heart rate increased [Unknown]

NARRATIVE: CASE EVENT DATE: 201907
